FAERS Safety Report 8979384 (Version 2)
Quarter: 2013Q1

REPORT INFORMATION
  Report Type: Spontaneous
  Country: US (occurrence: US)
  Receive Date: 20121221
  Receipt Date: 20130131
  Transmission Date: 20140127
  Serious: No
  Sender: FDA-Public Use
  Company Number: US-TEVA-377361USA

PATIENT
  Age: 22 Year
  Sex: Female
  Weight: 54.48 kg

DRUGS (1)
  1. PLAN B ONE-STEP [Suspect]
     Indication: POST COITAL CONTRACEPTION
     Dosage: 1.5 MILLIGRAM DAILY;
     Route: 048
     Dates: start: 20121216, end: 20121216

REACTIONS (3)
  - Anxiety [Recovered/Resolved]
  - Mood altered [Recovered/Resolved]
  - Nausea [Recovered/Resolved]
